FAERS Safety Report 9564878 (Version 1)
Quarter: 2013Q3

REPORT INFORMATION
  Report Type: Spontaneous
  Country: MX (occurrence: MX)
  Receive Date: 20130930
  Receipt Date: 20130930
  Transmission Date: 20140515
  Serious: Yes (Other)
  Sender: FDA-Public Use
  Company Number: PHHY2013MX108323

PATIENT
  Age: 76 Year
  Sex: Female

DRUGS (8)
  1. ACLASTA [Suspect]
     Indication: OSTEOPOROSIS
     Dosage: 5MG/100ML ANNUALLY
     Route: 042
     Dates: start: 200806
  2. ACLASTA [Suspect]
     Dosage: 5MG/100ML ANNUALLY
     Route: 042
  3. ACLASTA [Suspect]
     Dosage: 5MG/100ML ANNUALLY
     Route: 042
     Dates: end: 2012
  4. ACLASTA [Suspect]
     Dosage: 5MG/100ML ANNUALLY
     Route: 042
     Dates: start: 2013
  5. MINIPRESS [Concomitant]
     Dosage: 1 DAILY
     Dates: start: 2008
  6. TENORETIC [Concomitant]
     Dosage: 2 DAILY
     Dates: start: 2008
  7. BONVIVA [Concomitant]
     Dosage: UNK
     Dates: start: 2012
  8. CITRACAL + D [Concomitant]
     Dosage: UNK
     Dates: start: 2012

REACTIONS (6)
  - Eye haemorrhage [Not Recovered/Not Resolved]
  - Visual acuity reduced [Not Recovered/Not Resolved]
  - Eye injury [Not Recovered/Not Resolved]
  - Osteoporosis [Not Recovered/Not Resolved]
  - Blood pressure abnormal [Unknown]
  - Spinal cord disorder [Not Recovered/Not Resolved]
